FAERS Safety Report 6643296-8 (Version None)
Quarter: 2010Q1

REPORT INFORMATION
  Report Type: 
  Country: None (occurrence: None)
  Receive Date: 20100319
  Receipt Date: 20100311
  Transmission Date: 20100710
  Serious: Yes (Death)
  Sender: FDA-Public Use
  Company Number: GXKR2010TW01650

PATIENT
  Age: 13 Month
  Sex: Male

DRUGS (7)
  1. PREDNISOLONE [Suspect]
     Indication: ACUTE LYMPHOCYTIC LEUKAEMIA
     Dosage: 40 MG/M2/DAY (DAYS 1 TO 28)
     Route: 048
  2. VINCRISTINE (NGX) [Suspect]
     Indication: ACUTE LYMPHOCYTIC LEUKAEMIA
     Dosage: 1.5 MG/M2, QD  (DAYS 1, 8, 15 AND 22)
     Route: 065
  3. METHOTREXATE [Suspect]
     Indication: ACUTE LYMPHOCYTIC LEUKAEMIA
     Dosage: SINGLE DOSE ON DAY 15
     Route: 037
  4. CYTARABINE (NGX) [Suspect]
     Indication: ACUTE LYMPHOCYTIC LEUKAEMIA
     Dosage: SINGLE DOSE AT DAY 15
     Route: 037
  5. HYDROCORTISONE [Suspect]
     Indication: ACUTE LYMPHOCYTIC LEUKAEMIA
     Dosage: SINGLE DOSE AT DAY 15
     Route: 037
  6. IDARUBICIN HCL [Suspect]
     Indication: ACUTE LYMPHOCYTIC LEUKAEMIA
     Dosage: 8 MG/M2, QD , (DAYS 1, 8, 15 AND 22)
     Route: 065
  7. ASPARAGINASE [Suspect]
     Indication: ACUTE LYMPHOCYTIC LEUKAEMIA
     Dosage: 5000 U/M2, QD EVERY THIRD DAY FOR 6 DOSES FROM DAY 19
     Route: 065

REACTIONS (11)
  - CARDIOPULMONARY FAILURE [None]
  - COMA [None]
  - CONTINUOUS HAEMODIAFILTRATION [None]
  - ENDOTRACHEAL INTUBATION [None]
  - HYPERAMMONAEMIC ENCEPHALOPATHY [None]
  - HYPOTHERMIA [None]
  - METABOLIC ALKALOSIS [None]
  - MYDRIASIS [None]
  - RESPIRATORY ALKALOSIS [None]
  - TACHYPNOEA [None]
  - UNRESPONSIVE TO STIMULI [None]
